FAERS Safety Report 10697523 (Version 1)
Quarter: 2015Q1

REPORT INFORMATION
  Report Type: Spontaneous
  Country: US (occurrence: US)
  Receive Date: 20150108
  Receipt Date: 20150108
  Transmission Date: 20150721
  Serious: No
  Sender: FDA-Public Use
  Company Number: US-009507513-1501USA001289

PATIENT
  Age: 32 Year
  Sex: Female
  Weight: 58.96 kg

DRUGS (1)
  1. IMPLANON [Suspect]
     Active Substance: ETONOGESTREL
     Indication: CONTRACEPTION
     Dosage: DOSE UNKNOWN, IN THE LEFT ARM
     Route: 059
     Dates: start: 20140525

REACTIONS (4)
  - Mood swings [Unknown]
  - Menorrhagia [Unknown]
  - Abdominal pain [Unknown]
  - Painful respiration [Unknown]

NARRATIVE: CASE EVENT DATE: 20150105
